FAERS Safety Report 10420441 (Version 1)
Quarter: 2014Q3

REPORT INFORMATION
  Report Type: Spontaneous
  Country: US (occurrence: None)
  Receive Date: 20140701
  Receipt Date: 20140701
  Transmission Date: 20150326
  Serious: No
  Sender: FDA-Public Use
  Company Number: 1000067502

PATIENT
  Sex: Female

DRUGS (3)
  1. VITAMIN D [Concomitant]
     Active Substance: CHOLECALCIFEROL
  2. LINZESS [Suspect]
     Active Substance: LINACLOTIDE
     Indication: CONSTIPATION
     Route: 048
     Dates: start: 20140514, end: 20140518
  3. VIVELLE-DOT (ESTRADIOL) (ESTRADIOL) [Concomitant]

REACTIONS (4)
  - Abdominal discomfort [None]
  - Faeces hard [None]
  - Drug effect decreased [None]
  - Abdominal distension [None]

NARRATIVE: CASE EVENT DATE: 20140515
